FAERS Safety Report 5226936-X (Version None)
Quarter: 2007Q1

REPORT INFORMATION
  Report Type: 
  Country: None (occurrence: None)
  Receive Date: 20070201
  Receipt Date: 20070201
  Transmission Date: 20070707
  Serious: Yes (Hospitalization)
  Sender: FDA-Public Use
  Company Number: None

PATIENT
  Age: 74 Year
  Sex: Male
  Weight: 78 kg

DRUGS (9)
  1. AVASTIN [Suspect]
     Indication: NON-SMALL CELL LUNG CANCER
     Dosage: 15MG/KG Q21 DAYS IV
     Route: 042
     Dates: start: 20061213
  2. PACLITAXEL [Concomitant]
  3. CARBOPLATIN [Concomitant]
  4. PEPCID [Concomitant]
  5. BENADRYL [Concomitant]
  6. TYLENOL [Concomitant]
  7. ATIVAN [Concomitant]
  8. DECADRON [Concomitant]
  9. ALOXI [Concomitant]

REACTIONS (1)
  - DEEP VEIN THROMBOSIS [None]
